FAERS Safety Report 24560404 (Version 1)
Quarter: 2024Q4

REPORT INFORMATION
  Report Type: Spontaneous
  Country: US (occurrence: US)
  Receive Date: 20241029
  Receipt Date: 20241029
  Transmission Date: 20250115
  Serious: No
  Sender: ELI LILLY AND COMPANY
  Company Number: US-ELI_LILLY_AND_COMPANY-US202410019547

PATIENT

DRUGS (1)
  1. MIRIKIZUMAB [Suspect]
     Active Substance: MIRIKIZUMAB
     Indication: Colitis ulcerative
     Dosage: UNK UNK, UNKNOWN
     Route: 065

REACTIONS (1)
  - Alopecia [Unknown]
